FAERS Safety Report 8984011 (Version 1)
Quarter: 2012Q4

REPORT INFORMATION
  Report Type: Spontaneous
  Country: US (occurrence: None)
  Receive Date: 20121218
  Receipt Date: 20121218
  Transmission Date: 20130627
  Serious: Yes (Hospitalization)
  Sender: FDA-Public Use
  Company Number: None

PATIENT
  Age: 63 Year
  Sex: Male

DRUGS (1)
  1. INCIVEK 375MG VERTEX [Suspect]
     Indication: CHRONIC HEPATITIS C
     Route: 048
     Dates: start: 20120828, end: 20121020

REACTIONS (1)
  - Stevens-Johnson syndrome [None]
